FAERS Safety Report 8593743 (Version 3)
Quarter: 2014Q1

REPORT INFORMATION
  Report Type: Spontaneous
  Country: US (occurrence: US)
  Receive Date: 20120604
  Receipt Date: 20140107
  Transmission Date: 20141002
  Serious: Yes (Hospitalization, Disabling)
  Sender: FDA-Public Use
  Company Number: US-ASTRAZENECA-2012SE34970

PATIENT
  Age: 38 Year
  Sex: Female
  Weight: 68 kg

DRUGS (16)
  1. NEXIUM [Suspect]
     Indication: GASTROOESOPHAGEAL REFLUX DISEASE
     Dosage: TWICA A DAY
     Route: 048
     Dates: start: 2008
  2. NEXIUM [Suspect]
     Indication: GASTROOESOPHAGEAL REFLUX DISEASE
     Route: 048
     Dates: start: 20090626
  3. ZANTAC [Concomitant]
  4. PROXICAM [Concomitant]
     Indication: LIGAMENT SPRAIN
  5. FLEXERIL [Concomitant]
  6. FOLIC ACID [Concomitant]
  7. POTASSIUM [Concomitant]
  8. VITAMIN D [Concomitant]
  9. TYLENOL [Concomitant]
     Indication: PAIN
  10. ATARAX [Concomitant]
     Indication: PRURITUS
  11. PREDNISONE [Concomitant]
     Indication: INFLAMMATION
  12. MOTRIN [Concomitant]
     Route: 048
     Dates: start: 200906
  13. ULTRAM [Concomitant]
     Indication: PAIN
     Route: 048
     Dates: start: 200901
  14. CELEXA [Concomitant]
     Indication: DEPRESSION
     Route: 048
     Dates: start: 20091216
  15. DIAZEPAM [Concomitant]
     Dates: start: 20080125
  16. PIROXICAM [Concomitant]
     Dates: start: 20080125

REACTIONS (8)
  - Cerebral sarcoidosis [Unknown]
  - Ill-defined disorder [Unknown]
  - Osteoporosis [Unknown]
  - Multiple fractures [Unknown]
  - Bone loss [Unknown]
  - Musculoskeletal stiffness [Unknown]
  - Hypothyroidism [Unknown]
  - Osteopenia [Unknown]
